FAERS Safety Report 5040708-0 (Version None)
Quarter: 2006Q2

REPORT INFORMATION
  Report Type: 
  Country: None (occurrence: None)
  Receive Date: 20060629
  Receipt Date: 20060629
  Transmission Date: 20061013
  Serious: Yes (Other)
  Sender: FDA-Public Use
  Company Number: None

PATIENT
  Sex: Female
  Weight: 68.0396 kg

DRUGS (3)
  1. DOXYCYCLINE [Suspect]
     Indication: ACNE
     Dosage: 100 MG BID 047
     Dates: start: 20021001, end: 20060512
  2. EFFEXOR [Concomitant]
  3. LITHIUM CARBONATE [Concomitant]

REACTIONS (4)
  - FOREIGN BODY TRAUMA [None]
  - IMPAIRED WORK ABILITY [None]
  - OESOPHAGEAL PAIN [None]
  - OESOPHAGITIS [None]
